FAERS Safety Report 15124779 (Version 1)
Quarter: 2018Q3

REPORT INFORMATION
  Report Type: Spontaneous
  Country: JP (occurrence: JP)
  Receive Date: 20180710
  Receipt Date: 20180710
  Transmission Date: 20181010
  Serious: Yes (Life-Threatening, Hospitalization, Other)
  Sender: FDA-Public Use
  Company Number: JP-ALEMBIC PHARMACUETICALS LIMITED-2018SCAL000476

PATIENT

DRUGS (7)
  1. ALCOHOL. [Suspect]
     Active Substance: ALCOHOL
     Indication: PRODUCT USED FOR UNKNOWN INDICATION
     Dosage: UNK
  2. DONEPEZIL HYDROCHLORIDE. [Suspect]
     Active Substance: DONEPEZIL HYDROCHLORIDE
     Indication: APATHY
     Dosage: UNK
  3. ZOLPIDEM [Suspect]
     Active Substance: ZOLPIDEM\ZOLPIDEM TARTRATE
     Indication: PRODUCT USED FOR UNKNOWN INDICATION
     Dosage: UNK
  4. LITHIUM CARBONATE. [Suspect]
     Active Substance: LITHIUM CARBONATE
     Indication: PRODUCT USED FOR UNKNOWN INDICATION
     Dosage: UNK
  5. ARIPIPRAZOLE. [Suspect]
     Active Substance: ARIPIPRAZOLE
     Indication: DEPRESSIVE SYMPTOM
     Dosage: UNK
  6. ETIZOLAM [Suspect]
     Active Substance: ETIZOLAM
     Indication: PRODUCT USED FOR UNKNOWN INDICATION
     Dosage: UNK
  7. LAMOTRIGINE. [Suspect]
     Active Substance: LAMOTRIGINE
     Indication: PRODUCT USED FOR UNKNOWN INDICATION
     Dosage: UNK

REACTIONS (40)
  - Tachycardia [Recovering/Resolving]
  - Abnormal behaviour [Recovering/Resolving]
  - Hypoxia [Recovering/Resolving]
  - Apathy [Recovering/Resolving]
  - Hypotension [Recovering/Resolving]
  - Coma [Recovering/Resolving]
  - Drug ineffective [Unknown]
  - Slow response to stimuli [Recovering/Resolving]
  - Impulsive behaviour [Recovering/Resolving]
  - Urinary incontinence [Unknown]
  - Anaemia [Recovering/Resolving]
  - Overdose [Unknown]
  - Leukoencephalopathy [Recovering/Resolving]
  - Respiratory failure [Recovering/Resolving]
  - Perseveration [Recovering/Resolving]
  - Feeling guilty [Recovering/Resolving]
  - Blood urea increased [Unknown]
  - Inappropriate affect [Recovering/Resolving]
  - Leukocytosis [Recovering/Resolving]
  - Blood creatine phosphokinase increased [Recovering/Resolving]
  - Mental impairment [Recovering/Resolving]
  - Locked-in syndrome [Recovering/Resolving]
  - Confusional state [Recovering/Resolving]
  - Respiratory acidosis [Recovering/Resolving]
  - Respiratory depression [Recovering/Resolving]
  - Stereotypy [Recovering/Resolving]
  - Disorientation [Recovering/Resolving]
  - Anxiety [Recovering/Resolving]
  - Chronic kidney disease [Unknown]
  - Frontotemporal dementia [Recovering/Resolving]
  - Hepatic function abnormal [Recovering/Resolving]
  - Suicide attempt [Unknown]
  - Suicidal ideation [Recovering/Resolving]
  - Taciturnity [Recovering/Resolving]
  - Renal failure [Unknown]
  - Tachypnoea [Recovering/Resolving]
  - Irritability [Recovering/Resolving]
  - Blood glucose increased [Recovering/Resolving]
  - Depression [Not Recovered/Not Resolved]
  - Hypokalaemia [Unknown]
